FAERS Safety Report 6178732-7 (Version None)
Quarter: 2009Q2

REPORT INFORMATION
  Report Type: 
  Country: None (occurrence: None)
  Receive Date: 20090430
  Receipt Date: 20090415
  Transmission Date: 20091009
  Serious: Yes (Other)
  Sender: FDA-Public Use
  Company Number: A-US2009-24860

PATIENT
  Age: 11 Month
  Sex: Male

DRUGS (5)
  1. TRACLEER [Suspect]
     Indication: PULMONARY ARTERIAL HYPERTENSION
     Dosage: 31.25 MG, BID, ORAL
     Route: 048
     Dates: start: 20081205, end: 20090331
  2. ASPIRIN [Concomitant]
  3. VIAGRA (SILDENAFEL CITRATE) [Concomitant]
  4. LASIX [Concomitant]
  5. AMOXICILLIN [Concomitant]

REACTIONS (31)
  - ACTIVATED PARTIAL THROMBOPLASTIN TIME ABNORMAL [None]
  - ALANINE AMINOTRANSFERASE INCREASED [None]
  - AMMONIA ABNORMAL [None]
  - ASPARTATE AMINOTRANSFERASE INCREASED [None]
  - BLOOD BILIRUBIN INCREASED [None]
  - BLOOD TRIGLYCERIDES INCREASED [None]
  - BLOOD URINE PRESENT [None]
  - CARDIAC FAILURE CONGESTIVE [None]
  - CARDIAC OUTPUT DECREASED [None]
  - CATHETERISATION CARDIAC ABNORMAL [None]
  - CHYLOTHORAX [None]
  - DIARRHOEA [None]
  - FIBRIN D DIMER INCREASED [None]
  - HYPOCALCAEMIA [None]
  - HYPOKALAEMIA [None]
  - HYPOTENSION [None]
  - INCISION SITE INFECTION [None]
  - INCREASED BRONCHIAL SECRETION [None]
  - IRRITABILITY [None]
  - KLEBSIELLA INFECTION [None]
  - LIVER DISORDER [None]
  - LIVER FUNCTION TEST ABNORMAL [None]
  - LUNG CONSOLIDATION [None]
  - OFF LABEL USE [None]
  - PROTHROMBIN TIME ABNORMAL [None]
  - PULMONARY ARTERIAL PRESSURE INCREASED [None]
  - RESPIRATORY SYNCYTIAL VIRUS INFECTION [None]
  - SUPERIOR VENA CAVAL OCCLUSION [None]
  - TRACHEITIS [None]
  - URINE PROTEIN, QUANTITATIVE [None]
  - URINE PROTEIN/CREATININE RATIO ABNORMAL [None]
